FAERS Safety Report 5315267-5 (Version None)
Quarter: 2007Q2

REPORT INFORMATION
  Report Type: 
  Country: None (occurrence: None)
  Receive Date: 20070502
  Receipt Date: 20070420
  Transmission Date: 20071010
  Serious: Yes (Other)
  Sender: FDA-Public Use
  Company Number: US-PFIZER INC-2007032271

PATIENT
  Sex: Male
  Weight: 92.272 kg

DRUGS (13)
  1. LYRICA [Suspect]
     Indication: NEUROPATHY PERIPHERAL
     Dates: start: 20070101
  2. ASPIRIN [Concomitant]
  3. AVANDIA [Concomitant]
  4. COREG [Concomitant]
  5. ISOSORBIDE [Concomitant]
  6. FUROSEMIDE [Concomitant]
  7. LEVOXYL [Concomitant]
  8. LIPITOR [Concomitant]
  9. CENTRUM [Concomitant]
  10. OSCAL [Concomitant]
  11. CLOPIDOGREL [Concomitant]
  12. CILOSTAZOL [Concomitant]
  13. NAPROXEN [Concomitant]

REACTIONS (1)
  - MYOCARDIAL INFARCTION [None]
